FAERS Safety Report 8382538-8 (Version None)
Quarter: 2012Q2

REPORT INFORMATION
  Report Type: 
  Country: None (occurrence: None)
  Receive Date: 20120524
  Receipt Date: 20120516
  Transmission Date: 20120825
  Serious: Yes (Death, Other)
  Sender: FDA-Public Use
  Company Number: US-GENZYME-RENA-1001522

PATIENT

DRUGS (4)
  1. RENAGEL [Suspect]
     Indication: HYPERPHOSPHATAEMIA
     Dosage: UNK
     Route: 065
  2. RENAGEL [Suspect]
     Indication: RENAL FAILURE CHRONIC
  3. RENVELA [Suspect]
     Indication: RENAL FAILURE CHRONIC
  4. RENVELA [Suspect]
     Indication: HYPERPHOSPHATAEMIA
     Dosage: 8.8 G, QD
     Route: 048
     Dates: start: 20111001

REACTIONS (3)
  - COMA [None]
  - CARDIAC ARREST [None]
  - CARDIAC PACEMAKER REPLACEMENT [None]
